FAERS Safety Report 8196394-4 (Version None)
Quarter: 2012Q1

REPORT INFORMATION
  Report Type: 
  Country: None (occurrence: None)
  Receive Date: 20120307
  Receipt Date: 20120307
  Transmission Date: 20120608
  Serious: Yes (Hospitalization)
  Sender: FDA-Public Use
  Company Number: None

PATIENT
  Age: 47 Year
  Sex: Female
  Weight: 67.4 kg

DRUGS (2)
  1. RISPERIDONE [Suspect]
     Indication: PSYCHOTIC DISORDER
     Dosage: 1/2 TAB BID PO
     Route: 048
     Dates: start: 20111117, end: 20111129
  2. BUPROPION HCL [Suspect]
     Indication: DEPRESSION
     Dosage: 1 TAB BID PO
     Route: 048
     Dates: start: 20090126, end: 20111129

REACTIONS (3)
  - HALLUCINATION [None]
  - ANXIETY [None]
  - DELIRIUM [None]
